FAERS Safety Report 21823866 (Version 1)
Quarter: 2023Q1

REPORT INFORMATION
  Report Type: Spontaneous
  Country: PL (occurrence: None)
  Receive Date: 20230105
  Receipt Date: 20230105
  Transmission Date: 20230417
  Serious: Yes (Hospitalization, Other)
  Sender: FDA-Public Use
  Company Number: 2022A418092

PATIENT
  Age: 50 Year
  Sex: Male

DRUGS (15)
  1. DAPAGLIFLOZIN [Suspect]
     Active Substance: DAPAGLIFLOZIN
     Indication: Product used for unknown indication
     Dosage: UNK UNK
     Route: 065
     Dates: start: 202011
  2. DAPAGLIFLOZIN [Suspect]
     Active Substance: DAPAGLIFLOZIN
     Indication: Product used for unknown indication
     Dosage: 10 MG, QD (1 TABLET IN THE MORNING)
     Route: 065
     Dates: start: 2020
  3. ATORVASTATIN [Suspect]
     Active Substance: ATORVASTATIN
     Indication: Product used for unknown indication
     Dosage: 20 MG
     Route: 065
     Dates: start: 2020
  4. NEBIVOLOL [Suspect]
     Active Substance: NEBIVOLOL
     Indication: Product used for unknown indication
     Dosage: 1 DOSAGE FORM, QD (10 MG, (1 TABLET IN THE MORNING)
     Route: 065
     Dates: start: 2020
  5. TORSEMIDE [Suspect]
     Active Substance: TORSEMIDE
     Indication: Product used for unknown indication
     Dosage: 1 DOSAGE FORM, QD (10 MG) 1 TABLET IN THE MORNING)
     Route: 065
     Dates: start: 2020
  6. TORSEMIDE [Suspect]
     Active Substance: TORSEMIDE
     Indication: Product used for unknown indication
     Dosage: UNK (1X5 MG)
     Route: 065
  7. AMIODARONE [Suspect]
     Active Substance: AMIODARONE
     Indication: Product used for unknown indication
     Dosage: 1 DOSAGE FORM, QD (200 MG,(1 TABLET IN THE MORNING)
     Route: 065
     Dates: start: 2020
  8. PATIROMER [Suspect]
     Active Substance: PATIROMER
     Indication: Product used for unknown indication
     Dosage: UNK
     Route: 065
     Dates: start: 2020
  9. FUROSEMIDE [Suspect]
     Active Substance: FUROSEMIDE
     Indication: Product used for unknown indication
     Dosage: 1 DOSAGE FORM, QD (1 TABLET IN THE MORNING)
     Route: 065
     Dates: start: 2020
  10. SACUBITRIL\VALSARTAN [Suspect]
     Active Substance: SACUBITRIL\VALSARTAN
     Indication: Product used for unknown indication
     Dosage: UNK
     Route: 065
     Dates: start: 202007
  11. SACUBITRIL\VALSARTAN [Suspect]
     Active Substance: SACUBITRIL\VALSARTAN
     Indication: Product used for unknown indication
     Dosage: 1 DOSAGE FORM (49/51 MG) (1/2 TABLET IN THE MORNING, 1/2 TABLET IN THE EVENING)
     Route: 065
     Dates: start: 2020
  12. SPIRONOLACTONE [Concomitant]
     Active Substance: SPIRONOLACTONE
     Indication: Product used for unknown indication
     Dosage: UNK (1X25 MG)
     Route: 065
  13. METOPROLOL TARTRATE [Concomitant]
     Active Substance: METOPROLOL TARTRATE
     Indication: Product used for unknown indication
     Dosage: UNK (1X47.5 MG)
     Route: 065
  14. ATORVASTATIN CALCIUM [Concomitant]
     Active Substance: ATORVASTATIN CALCIUM
     Indication: Product used for unknown indication
     Dosage: UNK (1X20 MG)
     Route: 065
  15. CORDARONE [Concomitant]
     Active Substance: AMIODARONE HYDROCHLORIDE
     Indication: Product used for unknown indication
     Dosage: UNK (1X 200 MG EVERY SECOND DAY)
     Route: 065

REACTIONS (25)
  - Inferior vena cava syndrome [Unknown]
  - Arrhythmic storm [Unknown]
  - Tricuspid valve incompetence [Unknown]
  - Kidney transplant rejection [Unknown]
  - Cardiac failure chronic [Unknown]
  - Acute kidney injury [Unknown]
  - Ventricular arrhythmia [Unknown]
  - Ventricular hypokinesia [Unknown]
  - Chronic kidney disease [Unknown]
  - Left ventricular false tendon [Unknown]
  - Ejection fraction decreased [Unknown]
  - Ventricular tachycardia [Unknown]
  - Mitral valve disease [Unknown]
  - Cardiomegaly [Unknown]
  - Glomerular filtration rate decreased [Unknown]
  - Oedema [Unknown]
  - Hepatomegaly [Unknown]
  - N-terminal prohormone brain natriuretic peptide increased [Unknown]
  - Left atrial enlargement [Unknown]
  - Abdominal pain upper [Unknown]
  - Lung diffusion test abnormal [Unknown]
  - Ventricular internal diameter abnormal [Unknown]
  - Drug ineffective [Unknown]
  - Central obesity [Unknown]
  - Wrong technique in product usage process [Unknown]

NARRATIVE: CASE EVENT DATE: 20200701
